FAERS Safety Report 14377376 (Version 8)
Quarter: 2018Q4

REPORT INFORMATION
  Report Type: Report from Study
  Country: DE (occurrence: DE)
  Receive Date: 20180111
  Receipt Date: 20181211
  Transmission Date: 20190204
  Serious: Yes (Death, Hospitalization)
  Sender: FDA-Public Use
  Company Number: DE-CELGENEUS-DEU-20180102430

PATIENT
  Age: 71 Year
  Sex: Male
  Weight: 78 kg

DRUGS (64)
  1. CEFTAZIDIM [Concomitant]
     Active Substance: CEFTAZIDIME
     Route: 065
     Dates: start: 20180108, end: 20180110
  2. AMPHOTERICIN B. [Concomitant]
     Active Substance: AMPHOTERICIN B
     Indication: PROPHYLAXIS
     Route: 065
     Dates: start: 20180107, end: 20180113
  3. LINEZOLID. [Concomitant]
     Active Substance: LINEZOLID
     Route: 065
     Dates: start: 20180119, end: 20180124
  4. RED BLOOD CELLS [Concomitant]
     Active Substance: HUMAN RED BLOOD CELL
     Indication: ANAEMIA
     Dosage: 1 UNITS
     Route: 065
     Dates: start: 20180107, end: 20180107
  5. RED BLOOD CELLS [Concomitant]
     Active Substance: HUMAN RED BLOOD CELL
     Dosage: 1 UNITS
     Route: 065
     Dates: start: 20171214, end: 20171214
  6. LEVOFLOXACIN. [Concomitant]
     Active Substance: LEVOFLOXACIN
     Route: 065
     Dates: start: 20180110, end: 20180124
  7. AMLODIPINE [Concomitant]
     Active Substance: AMLODIPINE BESYLATE
     Indication: HYPERTENSION
     Route: 065
     Dates: start: 2012, end: 20180106
  8. KALINOR BT [Concomitant]
     Active Substance: POTASSIUM CARBONATE\POTASSIUM CITRATE
     Indication: PROPHYLAXIS
     Route: 065
     Dates: start: 20180113, end: 20180118
  9. MEROPENEM. [Concomitant]
     Active Substance: MEROPENEM
     Route: 065
     Dates: start: 20180210, end: 20180212
  10. AMPHOTERICIN B. [Concomitant]
     Active Substance: AMPHOTERICIN B
     Route: 065
     Dates: start: 20180125
  11. PARACETAMOL [Concomitant]
     Active Substance: ACETAMINOPHEN
     Route: 065
     Dates: start: 20171214, end: 20171216
  12. ZOPLICON [Concomitant]
     Indication: INSOMNIA
     Route: 065
     Dates: start: 20180111, end: 20180111
  13. LINEZOLID. [Concomitant]
     Active Substance: LINEZOLID
     Indication: LUNG INFECTION
     Route: 065
     Dates: start: 20180118, end: 20180118
  14. PLATELETS [Concomitant]
     Active Substance: HUMAN PLATELET, ALLOGENIC
     Dosage: 32 X10E9/L
     Route: 041
     Dates: start: 20180120, end: 20180120
  15. RED BLOOD CELLS [Concomitant]
     Active Substance: HUMAN RED BLOOD CELL
     Dosage: 2 UNITS
     Route: 065
     Dates: start: 20180129, end: 20180129
  16. LEVOFLOXACIN. [Concomitant]
     Active Substance: LEVOFLOXACIN
     Route: 065
     Dates: start: 20180125
  17. NOSCAPIN [Concomitant]
     Indication: LUNG INFECTION
     Route: 065
     Dates: start: 20180111, end: 20180111
  18. NOSCAPIN [Concomitant]
     Route: 065
     Dates: start: 20180125
  19. PLATELETS [Concomitant]
     Active Substance: HUMAN PLATELET, ALLOGENIC
     Dosage: 8 X10E9/L
     Route: 041
     Dates: start: 20180112, end: 20180112
  20. PLATELETS [Concomitant]
     Active Substance: HUMAN PLATELET, ALLOGENIC
     Dosage: 10 X10E9/L
     Route: 041
     Dates: start: 20180116, end: 20180116
  21. RED BLOOD CELLS [Concomitant]
     Active Substance: HUMAN RED BLOOD CELL
     Dosage: 1 UNITS
     Route: 065
     Dates: start: 20180121, end: 20180121
  22. RED BLOOD CELLS [Concomitant]
     Active Substance: HUMAN RED BLOOD CELL
     Dosage: 2 UNITS
     Route: 065
     Dates: start: 20180209, end: 20180209
  23. RED BLOOD CELLS [Concomitant]
     Active Substance: HUMAN RED BLOOD CELL
     Dosage: 2 UNITS
     Route: 065
     Dates: start: 20171220, end: 20171220
  24. LEVOFLOXACIN. [Concomitant]
     Active Substance: LEVOFLOXACIN
     Indication: LUNG INFECTION
     Route: 065
     Dates: start: 20180109, end: 20180109
  25. KALINOR BT [Concomitant]
     Active Substance: POTASSIUM CARBONATE\POTASSIUM CITRATE
     Indication: HYPOKALAEMIA
     Route: 065
     Dates: start: 20180112, end: 20180112
  26. VANCOMYCIN [Concomitant]
     Active Substance: VANCOMYCIN
     Route: 065
     Dates: start: 20180118, end: 20180118
  27. MEROPENEM. [Concomitant]
     Active Substance: MEROPENEM
     Indication: LUNG INFECTION
     Route: 065
     Dates: start: 20180111, end: 20180111
  28. SODIUM CHLORIDE. [Concomitant]
     Active Substance: SODIUM CHLORIDE
     Route: 055
     Dates: start: 20180117, end: 20180124
  29. PARACETAMOL [Concomitant]
     Active Substance: ACETAMINOPHEN
     Route: 065
     Dates: start: 20180117, end: 20180117
  30. MACROGOL [Concomitant]
     Active Substance: POLYETHYLENE GLYCOLS
     Indication: CONSTIPATION
     Route: 065
     Dates: start: 20180109, end: 20180109
  31. PLATELETS [Concomitant]
     Active Substance: HUMAN PLATELET, ALLOGENIC
     Indication: PLATELET COUNT DECREASED
     Dosage: 6 X10E9/L
     Route: 041
     Dates: start: 20180107, end: 20180107
  32. PLATELETS [Concomitant]
     Active Substance: HUMAN PLATELET, ALLOGENIC
     Dosage: 5 X10E9/L
     Route: 041
     Dates: start: 20180129, end: 20180129
  33. PLATELETS [Concomitant]
     Active Substance: HUMAN PLATELET, ALLOGENIC
     Dosage: 14 X10E9/L
     Route: 041
     Dates: start: 20180210, end: 20180210
  34. CEFTAZIDIM [Concomitant]
     Active Substance: CEFTAZIDIME
     Indication: LUNG INFECTION
     Route: 065
     Dates: start: 20180107, end: 20180107
  35. MEROPENEM. [Concomitant]
     Active Substance: MEROPENEM
     Route: 065
     Dates: start: 20180112, end: 20180124
  36. LACTULOSE. [Concomitant]
     Active Substance: LACTULOSE
     Indication: CONSTIPATION
     Route: 065
     Dates: start: 20180109, end: 20180109
  37. ZOPLICON [Concomitant]
     Route: 065
     Dates: start: 20180119, end: 20180121
  38. PLATELETS [Concomitant]
     Active Substance: HUMAN PLATELET, ALLOGENIC
     Dosage: 6 X10E9/L
     Route: 041
     Dates: start: 20171227, end: 20171227
  39. RED BLOOD CELLS [Concomitant]
     Active Substance: HUMAN RED BLOOD CELL
     Dosage: 2 UNITS
     Route: 065
     Dates: start: 20180113, end: 20180113
  40. LEVOFLOXACIN. [Concomitant]
     Active Substance: LEVOFLOXACIN
     Indication: INFECTION PROPHYLAXIS
     Route: 065
     Dates: start: 201712, end: 20180106
  41. VANCOMYCIN [Concomitant]
     Active Substance: VANCOMYCIN
     Route: 065
     Dates: start: 20180112, end: 20180117
  42. MEROPENEM. [Concomitant]
     Active Substance: MEROPENEM
     Route: 065
     Dates: start: 20180206, end: 20180209
  43. SODIUM CHLORIDE. [Concomitant]
     Active Substance: SODIUM CHLORIDE
     Indication: LUNG INFECTION
     Route: 055
     Dates: start: 20180110, end: 20180110
  44. PARACETAMOL [Concomitant]
     Active Substance: ACETAMINOPHEN
     Indication: LUNG INFECTION
     Route: 065
     Dates: start: 20180108, end: 20180111
  45. PARACETAMOL [Concomitant]
     Active Substance: ACETAMINOPHEN
     Indication: NIGHT SWEATS
     Route: 065
     Dates: start: 20180114, end: 20180114
  46. FRESUBIN [Concomitant]
     Active Substance: AMINO ACIDS\DEXTROSE\ELECTROLYTES NOS\SOYBEAN OIL\VITAMINS
     Indication: NUTRITIONAL SUPPLEMENTATION
     Route: 065
     Dates: start: 20180123
  47. LINEZOLID. [Concomitant]
     Active Substance: LINEZOLID
     Route: 065
     Dates: start: 20180125, end: 20180127
  48. TORASEMIDE [Concomitant]
     Active Substance: TORSEMIDE
     Indication: HYPERTENSION
     Route: 065
     Dates: start: 20180125
  49. PLATELETS [Concomitant]
     Active Substance: HUMAN PLATELET, ALLOGENIC
     Dosage: 13 X10E9/L
     Route: 041
     Dates: start: 20180119, end: 20180119
  50. RED BLOOD CELLS [Concomitant]
     Active Substance: HUMAN RED BLOOD CELL
     Dosage: 1 UNITS
     Route: 065
     Dates: start: 20180201, end: 20180201
  51. AMLODIPINE [Concomitant]
     Active Substance: AMLODIPINE BESYLATE
     Route: 065
     Dates: start: 20180108, end: 20180117
  52. NOSCAPIN [Concomitant]
     Indication: PROPHYLAXIS
     Route: 065
     Dates: start: 20180112, end: 20180124
  53. FUROSEMIDE. [Concomitant]
     Active Substance: FUROSEMIDE
     Indication: LUNG INFECTION
     Route: 065
     Dates: start: 20180117, end: 20180124
  54. PLATELETS [Concomitant]
     Active Substance: HUMAN PLATELET, ALLOGENIC
     Dosage: 7 X10E9/L
     Route: 041
     Dates: start: 20180206, end: 20180206
  55. PLATELETS [Concomitant]
     Active Substance: HUMAN PLATELET, ALLOGENIC
     Dosage: 21 X10E9/L
     Route: 041
     Dates: start: 20180207, end: 20180207
  56. RED BLOOD CELLS [Concomitant]
     Active Substance: HUMAN RED BLOOD CELL
     Dosage: 1 UNITS
     Route: 065
     Dates: start: 20180109, end: 20180109
  57. RED BLOOD CELLS [Concomitant]
     Active Substance: HUMAN RED BLOOD CELL
     Dosage: 1 UNITS
     Route: 065
     Dates: start: 20180123, end: 20180123
  58. RED BLOOD CELLS [Concomitant]
     Active Substance: HUMAN RED BLOOD CELL
     Dosage: 2 UNITS
     Route: 065
     Dates: start: 20180206, end: 20180206
  59. RED BLOOD CELLS [Concomitant]
     Active Substance: HUMAN RED BLOOD CELL
     Dosage: 2 UNITS
     Route: 065
     Dates: start: 20171229, end: 20171229
  60. AG-221 [Suspect]
     Active Substance: ENASIDENIB
     Indication: ACUTE MYELOID LEUKAEMIA
     Route: 065
  61. BISOPROLOL [Concomitant]
     Active Substance: BISOPROLOL
     Indication: HYPERTENSION
     Route: 065
     Dates: start: 2012
  62. CEFTAZIDIM [Concomitant]
     Active Substance: CEFTAZIDIME
     Route: 065
     Dates: start: 20180111, end: 20180111
  63. KALINOR BT [Concomitant]
     Active Substance: POTASSIUM CARBONATE\POTASSIUM CITRATE
     Route: 065
     Dates: start: 20180119, end: 20180124
  64. VANCOMYCIN [Concomitant]
     Active Substance: VANCOMYCIN
     Indication: LUNG INFECTION
     Route: 065
     Dates: start: 20180111, end: 20180111

REACTIONS (3)
  - Lung infection [Fatal]
  - Epistaxis [Recovered/Resolved]
  - Respiratory failure [Fatal]

NARRATIVE: CASE EVENT DATE: 20180107
